FAERS Safety Report 10425292 (Version 1)
Quarter: 2014Q3

REPORT INFORMATION
  Report Type: Spontaneous
  Country: US (occurrence: None)
  Receive Date: 20140725
  Receipt Date: 20140725
  Transmission Date: 20150326
  Serious: No
  Sender: FDA-Public Use
  Company Number: AP356-00962-SPO-US

PATIENT
  Age: 59 Year
  Sex: Female
  Weight: 90.7 kg

DRUGS (5)
  1. LISINOPRIL/HCTZ (PRINZIDE) [Concomitant]
  2. BELVIQ [Suspect]
     Active Substance: LORCASERIN HYDROCHLORIDE
     Indication: WEIGHT DECREASED
     Route: 048
     Dates: start: 20140614
  3. LEVOTHYROXINE [Concomitant]
     Active Substance: LEVOTHYROXINE
  4. ASPIRIN (ACETYLSALICYLIC ACID) [Concomitant]
     Active Substance: ASPIRIN
  5. NEXIUM (ESMOPRAZOLE MAGNESIUM) [Concomitant]

REACTIONS (1)
  - Fatigue [None]

NARRATIVE: CASE EVENT DATE: 20140614
